FAERS Safety Report 7631437-5 (Version None)
Quarter: 2011Q3

REPORT INFORMATION
  Report Type: 
  Country: None (occurrence: None)
  Receive Date: 20110725
  Receipt Date: 20110711
  Transmission Date: 20111222
  Serious: Yes (Other)
  Sender: FDA-Public Use
  Company Number: CA-ELI_LILLY_AND_COMPANY-CA201107002690

PATIENT
  Sex: Male

DRUGS (11)
  1. NORVASC [Concomitant]
  2. FLONASE [Concomitant]
  3. VALPROATE SODIUM [Concomitant]
  4. CITALOPRAM HYDROBROMIDE [Concomitant]
  5. MONOPRIL [Concomitant]
  6. ZYPREXA ZYDIS [Suspect]
     Indication: SCHIZOPHRENIA
     Dosage: 15 MG, QD
  7. ATIVAN [Concomitant]
  8. ZYPREXA [Suspect]
     Indication: SCHIZOPHRENIA
     Dosage: 7.5 MG, QD
  9. ZYPREXA [Suspect]
     Dosage: 10 MG, QD
  10. ZYPREXA [Suspect]
     Dosage: 2.5 MG, QD
  11. RABEPRAZOLE SODIUM [Concomitant]

REACTIONS (5)
  - HYPERGLYCAEMIA [None]
  - BLOOD TRIGLYCERIDES INCREASED [None]
  - RENAL FAILURE CHRONIC [None]
  - BLOOD CHOLESTEROL INCREASED [None]
  - TUBULOINTERSTITIAL NEPHRITIS [None]
